FAERS Safety Report 6626424-X (Version None)
Quarter: 2010Q1

REPORT INFORMATION
  Report Type: 
  Country: None (occurrence: None)
  Receive Date: 20100310
  Receipt Date: 20090922
  Transmission Date: 20100710
  Serious: No
  Sender: FDA-Public Use
  Company Number: US-ABBOTT-09P-163-0600065-00

PATIENT
  Sex: Male
  Weight: 68.1 kg

DRUGS (4)
  1. LUPRON DEPOT [Suspect]
     Indication: PROSTATE CANCER
     Dosage: 2 INJECFIONS IN SIX MONTHS
     Route: 030
     Dates: start: 20080801, end: 20090201
  2. LUPRON DEPOT [Suspect]
     Dosage: DOSE UNKNOWN
     Route: 030
     Dates: start: 20090827
  3. LEVOTHROID [Concomitant]
     Indication: HYPOTHYROIDISM
     Route: 048
  4. SUPPLEMENT [Concomitant]
     Indication: MEDICAL DIET

REACTIONS (4)
  - DISCOMFORT [None]
  - FATIGUE [None]
  - INJECTION SITE PAIN [None]
  - MUSCLE TIGHTNESS [None]
